FAERS Safety Report 4466825-1 (Version None)
Quarter: 2004Q4

REPORT INFORMATION
  Report Type: 
  Country: None (occurrence: None)
  Receive Date: 20041006
  Receipt Date: 20040506
  Transmission Date: 20050328
  Serious: Yes (Life-Threatening, Hospitalization)
  Sender: FDA-Public Use
  Company Number: SE-ROCHE-367585

PATIENT
  Age: 57 Year
  Sex: Male

DRUGS (79)
  1. DACLIZUMAB [Suspect]
     Route: 042
     Dates: start: 20040428, end: 20040428
  2. DACLIZUMAB [Suspect]
     Route: 042
     Dates: start: 20040506, end: 20040506
  3. MYCOPHENOLATE MOFETIL [Suspect]
     Route: 042
     Dates: start: 20040428, end: 20040502
  4. MYCOPHENOLATE MOFETIL [Suspect]
     Route: 048
     Dates: start: 20040503, end: 20040601
  5. MYCOPHENOLATE MOFETIL [Suspect]
     Dosage: DECREASED DUE TO ADVERSE EVENT/TOXICITY.
     Route: 048
     Dates: start: 20040602, end: 20040602
  6. MYCOPHENOLATE MOFETIL [Suspect]
     Dosage: DECREASED DUE TO ADVERSE EVENT/TOXICITY.
     Route: 048
     Dates: start: 20040603, end: 20040706
  7. MYCOPHENOLATE MOFETIL [Suspect]
     Route: 048
     Dates: start: 20040707, end: 20040707
  8. MYCOPHENOLATE MOFETIL [Suspect]
     Route: 048
     Dates: start: 20040708, end: 20040708
  9. MYCOPHENOLATE MOFETIL [Suspect]
     Route: 048
     Dates: start: 20040709, end: 20040712
  10. MYCOPHENOLATE MOFETIL [Suspect]
     Route: 048
     Dates: start: 20040713, end: 20040714
  11. METHYLPREDNISOLONE [Suspect]
     Route: 065
     Dates: start: 20040427, end: 20040427
  12. METHYLPREDNISOLONE [Suspect]
     Dosage: TREATMENT FOR REJECTION.
     Route: 065
     Dates: start: 20040526, end: 20040526
  13. PREDNISOLONE [Suspect]
     Route: 065
     Dates: start: 20040428, end: 20040428
  14. PREDNISOLONE [Suspect]
     Route: 065
     Dates: start: 20040429, end: 20040429
  15. PREDNISOLONE [Suspect]
     Route: 065
     Dates: start: 20040430, end: 20040430
  16. PREDNISOLONE [Suspect]
     Route: 065
     Dates: start: 20040501, end: 20040501
  17. PREDNISOLONE [Suspect]
     Route: 065
     Dates: start: 20040502, end: 20040513
  18. PREDNISOLONE [Suspect]
     Route: 065
     Dates: start: 20040514, end: 20040518
  19. PREDNISOLONE [Suspect]
     Route: 065
     Dates: start: 20040519, end: 20040526
  20. PREDNISOLONE [Suspect]
     Dosage: TREATMENT FOR REJECTION.
     Route: 065
     Dates: start: 20040527, end: 20040527
  21. PREDNISOLONE [Suspect]
     Dosage: TREATMENT FOR REJECTION.
     Route: 065
     Dates: start: 20040528, end: 20040529
  22. PREDNISOLONE [Suspect]
     Dosage: BACK TO PROTOCOL TAPER.
     Route: 065
     Dates: start: 20040530, end: 20040531
  23. PREDNISOLONE [Suspect]
     Dosage: ALTERED DUE TO ADVERSE EVENT/TOXICITY.
     Route: 065
     Dates: start: 20040601, end: 20040602
  24. PREDNISOLONE [Suspect]
     Dosage: ALTERED DUE TO ADVERSE EVENT/TOXICITY.
     Route: 065
     Dates: start: 20040603, end: 20040603
  25. PREDNISOLONE [Suspect]
     Dosage: BACK TO PROTOCOL TAPER.
     Route: 065
     Dates: start: 20040604, end: 20040621
  26. PREDNISOLONE [Suspect]
     Route: 065
     Dates: start: 20040622, end: 20040622
  27. PREDNISOLONE [Suspect]
     Route: 065
     Dates: start: 20040623
  28. TACROLIMUS [Suspect]
     Route: 048
     Dates: start: 20040427, end: 20040428
  29. TACROLIMUS [Suspect]
     Route: 048
     Dates: start: 20040430, end: 20040502
  30. TACROLIMUS [Suspect]
     Route: 048
     Dates: start: 20040503, end: 20040505
  31. TACROLIMUS [Suspect]
     Route: 048
     Dates: start: 20040506, end: 20040512
  32. TACROLIMUS [Suspect]
     Route: 048
     Dates: start: 20040513, end: 20040513
  33. TACROLIMUS [Suspect]
     Route: 048
     Dates: start: 20040514, end: 20040521
  34. TACROLIMUS [Suspect]
     Route: 048
     Dates: start: 20040522, end: 20040523
  35. TACROLIMUS [Suspect]
     Route: 048
     Dates: start: 20040524, end: 20040527
  36. TACROLIMUS [Suspect]
     Route: 048
     Dates: start: 20040528, end: 20040528
  37. TACROLIMUS [Suspect]
     Route: 048
     Dates: start: 20040529, end: 20040530
  38. TACROLIMUS [Suspect]
     Route: 048
     Dates: start: 20040531, end: 20040601
  39. TACROLIMUS [Suspect]
     Route: 048
     Dates: start: 20040602, end: 20040602
  40. TACROLIMUS [Suspect]
     Route: 048
     Dates: start: 20040603, end: 20040604
  41. TACROLIMUS [Suspect]
     Route: 048
     Dates: start: 20040605, end: 20040608
  42. TACROLIMUS [Suspect]
     Route: 048
     Dates: start: 20040609, end: 20040622
  43. TACROLIMUS [Suspect]
     Route: 048
     Dates: start: 20040623
  44. PANTOPRAZOL [Concomitant]
     Dates: start: 20040317
  45. MEROPENEM [Concomitant]
     Indication: INFECTION PROPHYLAXIS
     Dates: start: 20040427, end: 20040913
  46. AMPHOTERICIN B [Concomitant]
     Indication: INFECTION PROPHYLAXIS
     Dates: start: 20040427, end: 20040914
  47. FITOMENADION [Concomitant]
     Dosage: STOPPED ON 7 MAY AND RESTARTED ON 14 JUNE 2004 FOR BLEEDING PROPHYLAXIS/ELEVATED PK VALUE.
     Dates: start: 20040428, end: 20040822
  48. DALTEPARIN [Concomitant]
     Indication: THROMBOSIS PROPHYLAXIS
     Dosage: STOPPED ON 28 APRIL 04 AND RESTARTED ON 23 AUGUST 04.
     Dates: start: 20040428
  49. ALBUMIN (HUMAN) [Concomitant]
     Indication: HYPOALBUMINAEMIA
     Dosage: ALBUMIN INFUSION.
     Route: 050
     Dates: start: 20040502, end: 20040902
  50. DIAZEPAM [Concomitant]
     Route: 065
     Dates: start: 20040506, end: 20040514
  51. NATRIUM PICOSULFATE [Concomitant]
     Indication: CONSTIPATION PROPHYLAXIS
     Dates: start: 20040508, end: 20040521
  52. TRAMADOL HCL [Concomitant]
     Dates: start: 20040501, end: 20040916
  53. PARACETAMOL [Concomitant]
     Dosage: STOPPED ON 22 MAY AND RESTARTED ON 27 MAY 2004 FOR FEVER DUE TO SEPTICAEMIA. STOPPED ON 10 JUNE, TA+
     Dates: start: 20040501, end: 20040916
  54. VANCOMYCIN [Concomitant]
     Indication: WOUND INFECTION
     Dates: start: 20040505, end: 20040913
  55. VALGANCICLOVIR [Concomitant]
     Indication: INFECTION PROPHYLAXIS
     Dosage: STOPPED ON 19 AUGUST AND RESTARTED ON 30 AUGUST 2004.
     Route: 065
     Dates: start: 20040511
  56. PENTAMIDIN [Concomitant]
     Indication: INFECTION PROPHYLAXIS
     Dosage: GIVEN FOR ONE DAY ON 13 MAY, 3 AUGUST AND 15 SEPTEMBER 2004.
     Dates: start: 20040513, end: 20040915
  57. ACETYLSALICYLIC ACID [Concomitant]
     Route: 065
     Dates: start: 20040528, end: 20040606
  58. TOBRAMYCIN [Concomitant]
     Dates: start: 20040602, end: 20040606
  59. ACTRAPID [Concomitant]
     Dates: start: 20040527
  60. FUROSEMIDE [Concomitant]
     Indication: URINE OUTPUT DECREASED
     Dates: start: 20040603, end: 20040824
  61. PETHIDIN [Concomitant]
     Dates: start: 20040605, end: 20040605
  62. KALIUMKLORID [Concomitant]
     Indication: HYPOKALAEMIA
     Dosage: STOPPED ON 14 JUNE AND RESTARTED 4 JULY 2004.
     Dates: start: 20040614, end: 20040719
  63. KLINDAMYCIN [Concomitant]
     Dates: start: 20040617, end: 20040702
  64. AMOXICILLIN [Concomitant]
     Dates: start: 20040615, end: 20040615
  65. AMPICILLIN [Concomitant]
     Dates: start: 20040616, end: 20040702
  66. FLUCONAZOLE [Concomitant]
     Dates: start: 20040614, end: 20040709
  67. NYSTATIN [Concomitant]
     Indication: INFECTION PROPHYLAXIS
     Dates: start: 20040624, end: 20040819
  68. MAGNESIUMHYDROXID [Concomitant]
     Indication: PROPHYLAXIS
     Dates: start: 20040704, end: 20040819
  69. SPIRONOLAKTON [Concomitant]
     Indication: PROPHYLAXIS
     Dates: start: 20040705, end: 20040819
  70. CIPROFLOXACIN [Concomitant]
     Indication: INFECTION PROPHYLAXIS
     Dosage: STOPPED ON 11 JULY AND RESTARTED ON 14 SEPT 04 FOR THE EVENT ^GALLEAKAGE^.
     Dates: start: 20040706
  71. COLESTYRAMIN [Concomitant]
     Dates: start: 20040810, end: 20040819
  72. MIRTAZAPIN [Concomitant]
     Indication: DEPRESSION
     Dosage: STOPPED ON 19 AUG AND RESTARTED ON 6 SEPT 04 FOR DEPRESSION.
     Dates: start: 20040818
  73. BLOOD TRANSFUSION [Concomitant]
     Dosage: STOPPED ON 22 AUG AND RESTARTED ON 1 SEPT 04 FOR THE EVENT ^GALLEAKAGE^.
     Dates: start: 20040820, end: 20040902
  74. PLASMA [Concomitant]
     Dosage: STOPPED ON 21 AUG AND RESTARTED ON 1 SEPT 04 FOR THE EVENT ^GALLEAKAGE^.
     Dates: start: 20040820, end: 20040902
  75. VOLUVEN [Concomitant]
     Dosage: STOPPED ON 20 AUG AND RESTARTED ON 1 SEPT 04 FOR THE EVENT ^GALLEAKAGE^.
     Dates: start: 20040820, end: 20040902
  76. UNKNOWN DRUG [Concomitant]
     Dosage: DRUG NAME: TROMBOCYTS. STOPPED ON 20 AUG AND RESTARTED ON 2 SEPT 04 FOR THE EVENT ^GALLEAKAGE^.
     Dates: start: 20040820, end: 20040902
  77. NOVOSEVEN [Concomitant]
     Dates: start: 20040820, end: 20040820
  78. KETOBEMIDON [Concomitant]
     Dosage: STOPPED ON 27 AUG AND RESTARTED ON 1 SEPT 04 FOR BOWEL PAIN DUE TO THE EVENT ^GALLEAKAGE^.
     Dates: start: 20040822, end: 20040903
  79. NATRIUM POLYSTYRENE SULPHONATE [Concomitant]
     Dates: start: 20040829, end: 20040829

REACTIONS (22)
  - ABDOMINAL ABSCESS [None]
  - BACTERAEMIA [None]
  - CANDIDIASIS [None]
  - DIABETES MELLITUS [None]
  - ENTEROCOCCAL INFECTION [None]
  - GASTROINTESTINAL PAIN [None]
  - HAEMORRHAGE [None]
  - HEPATIC ARTERY THROMBOSIS [None]
  - HYPOALBUMINAEMIA [None]
  - HYPOKALAEMIA [None]
  - HYPOTENSION [None]
  - KLEBSIELLA SEPSIS [None]
  - LABORATORY TEST ABNORMAL [None]
  - LIVER TRANSPLANT REJECTION [None]
  - PNEUMONIA KLEBSIELLA [None]
  - POST PROCEDURAL BILE LEAK [None]
  - POST PROCEDURAL HAEMORRHAGE [None]
  - SEPSIS [None]
  - THROMBOCYTHAEMIA [None]
  - URINE OUTPUT DECREASED [None]
  - WOUND COMPLICATION [None]
  - WOUND INFECTION [None]
